FAERS Safety Report 9113441 (Version 1)
Quarter: 2013Q1

REPORT INFORMATION
  Report Type: Spontaneous
  Country: US (occurrence: US)
  Receive Date: 20130131
  Receipt Date: 20130131
  Transmission Date: 20140127
  Serious: No
  Sender: FDA-Public Use
  Company Number: US-ASTRAZENECA-2013SE06020

PATIENT
  Age: 54 Year
  Sex: Female
  Weight: 56.7 kg

DRUGS (4)
  1. SYMBICORT [Suspect]
     Indication: ASTHMA
     Dosage: 160/4.5 MCG 2 PUFFS,TWO TIMES A DAY
     Route: 055
  2. SINGULAIR [Concomitant]
  3. ESTROGEN LOW DOSE [Concomitant]
  4. PRAVASTATIN [Concomitant]

REACTIONS (2)
  - Visual acuity reduced [Not Recovered/Not Resolved]
  - Glare [Unknown]
